FAERS Safety Report 7000712-X (Version None)
Quarter: 2010Q3

REPORT INFORMATION
  Report Type: 
  Country: None (occurrence: None)
  Receive Date: 20100920
  Receipt Date: 20100413
  Transmission Date: 20110219
  Serious: No
  Sender: FDA-Public Use
  Company Number: US-ASTRAZENECA-2010SE16510

PATIENT
  Sex: Female
  Weight: 61.2 kg

DRUGS (3)
  1. SEROQUEL [Suspect]
     Indication: BIPOLAR DISORDER
     Route: 048
     Dates: start: 20030101
  2. SEROQUEL [Suspect]
     Route: 048
     Dates: start: 20030101
  3. LAMOTRIGINE [Concomitant]

REACTIONS (4)
  - DISORIENTATION [None]
  - INITIAL INSOMNIA [None]
  - NAUSEA [None]
  - SOMNOLENCE [None]
